FAERS Safety Report 25086786 (Version 1)
Quarter: 2025Q1

REPORT INFORMATION
  Report Type: Report from Study
  Country: CA (occurrence: CA)
  Receive Date: 20250318
  Receipt Date: 20250318
  Transmission Date: 20250408
  Serious: Yes (Other)
  Sender: ABBVIE
  Company Number: CA-ABBVIE-6176759

PATIENT
  Age: 68 Year
  Sex: Female

DRUGS (1)
  1. RINVOQ [Suspect]
     Active Substance: UPADACITINIB
     Indication: Crohn^s disease
     Dosage: FREQUENCY: DIE
     Route: 048
     Dates: start: 20240707

REACTIONS (8)
  - Cardiac operation [Unknown]
  - Cardiac procedure complication [Unknown]
  - Vaginal infection [Unknown]
  - Dyspnoea [Unknown]
  - Rash [Unknown]
  - Blood cholesterol increased [Unknown]
  - Paraesthesia [Unknown]
  - Fatigue [Unknown]

NARRATIVE: CASE EVENT DATE: 20240101
